FAERS Safety Report 8832974 (Version 1)
Quarter: 2012Q4

REPORT INFORMATION
  Report Type: 
  Country: VE (occurrence: VE)
  Receive Date: 20121010
  Receipt Date: 20121010
  Transmission Date: 20130627
  Serious: Yes (Other)
  Sender: FDA-Public Use
  Company Number: VE-PFIZER INC-2012250087

PATIENT
  Age: 36 Year
  Sex: Female

DRUGS (1)
  1. LIPITOR [Suspect]
     Dosage: 20 mg, twice daily
     Route: 048
     Dates: start: 20120601, end: 20120804

REACTIONS (1)
  - Uterine disorder [Recovering/Resolving]
